FAERS Safety Report 14286507 (Version 1)
Quarter: 2017Q4

REPORT INFORMATION
  Report Type: Spontaneous
  Country: US (occurrence: US)
  Receive Date: 20171214
  Receipt Date: 20171214
  Transmission Date: 20180321
  Serious: No
  Sender: FDA-Public Use
  Company Number: US-ASTELLAS-2017US028865

PATIENT
  Sex: Male

DRUGS (1)
  1. TARCEVA [Suspect]
     Active Substance: ERLOTINIB HYDROCHLORIDE
     Indication: BONE DISORDER
     Dosage: 150 MG, EVERY OTHER DAY (1 TAB EVERY OTHER DAY ALTERNATING WITH 150MG TAB)
     Route: 048
     Dates: start: 20150427

REACTIONS (1)
  - Diarrhoea [Not Recovered/Not Resolved]
